FAERS Safety Report 9853210 (Version 2)
Quarter: 2014Q1

REPORT INFORMATION
  Report Type: Spontaneous
  Country: US (occurrence: US)
  Receive Date: 20140129
  Receipt Date: 20140217
  Transmission Date: 20141002
  Serious: Yes (Other)
  Sender: FDA-Public Use
  Company Number: ALCN2014US000807

PATIENT
  Age: 64 Year
  Sex: Female

DRUGS (4)
  1. NEVANAC [Suspect]
     Indication: CATARACT OPERATION
     Dosage: 1 GTT, UNK
     Route: 047
     Dates: start: 201312, end: 20140117
  2. PREDNISOLONE ACETATE [Suspect]
     Indication: CATARACT OPERATION
     Dosage: 1 GTT, QID
     Route: 047
     Dates: start: 201312, end: 201401
  3. VIGAMOX [Suspect]
     Indication: CATARACT OPERATION
     Dosage: UNK
     Route: 047
     Dates: start: 201312, end: 20140116
  4. THYROID THERAPY [Concomitant]
     Indication: HYPOTHYROIDISM
     Dosage: UNK

REACTIONS (6)
  - Hypersensitivity [Recovered/Resolved]
  - Conjunctival ulcer [Recovered/Resolved]
  - Photophobia [Recovered/Resolved]
  - Vision blurred [Recovered/Resolved]
  - Foreign body sensation in eyes [Recovered/Resolved]
  - Eye pain [Recovered/Resolved]
